FAERS Safety Report 18221849 (Version 1)
Quarter: 2020Q3

REPORT INFORMATION
  Report Type: Spontaneous
  Country: US (occurrence: US)
  Receive Date: 20200901
  Receipt Date: 20200901
  Transmission Date: 20201103
  Serious: Yes (Life-Threatening, Hospitalization, Other)
  Sender: FDA-Public Use
  Company Number: None

PATIENT
  Age: 38 Year
  Sex: Female
  Weight: 109 kg

DRUGS (1)
  1. GADOLINIUM [Suspect]
     Active Substance: GADOLINIUM
     Dates: start: 20200421, end: 20200421

REACTIONS (4)
  - Dyspnoea [None]
  - Depressed level of consciousness [None]
  - Anaphylactic reaction [None]
  - Pulse absent [None]

NARRATIVE: CASE EVENT DATE: 20200421
